FAERS Safety Report 14952744 (Version 1)
Quarter: 2018Q2

REPORT INFORMATION
  Report Type: Spontaneous
  Country: US (occurrence: US)
  Receive Date: 20180530
  Receipt Date: 20180530
  Transmission Date: 20180711
  Serious: No
  Sender: FDA-Public Use
  Company Number: US-LEXICON PHARMACEUTICALS, INC-18-1606-00565

PATIENT
  Age: 47 Year
  Sex: Male

DRUGS (7)
  1. TELOTRISTAT ETHYL [Suspect]
     Active Substance: TELOTRISTAT ETHYL
     Route: 048
     Dates: start: 2018, end: 201805
  2. ATENOLOL. [Concomitant]
     Active Substance: ATENOLOL
  3. NITROSTAT [Concomitant]
     Active Substance: NITROGLYCERIN
  4. TELOTRISTAT ETHYL [Suspect]
     Active Substance: TELOTRISTAT ETHYL
     Indication: CARCINOID SYNDROME
     Route: 048
     Dates: start: 20180316, end: 2018
  5. ASPIRIN. [Concomitant]
     Active Substance: ASPIRIN
  6. ZOFRAN [Concomitant]
     Active Substance: ONDANSETRON HYDROCHLORIDE
  7. DEPO-TESTOSTERONE [Concomitant]
     Active Substance: TESTOSTERONE CYPIONATE

REACTIONS (1)
  - Constipation [Unknown]

NARRATIVE: CASE EVENT DATE: 201803
